FAERS Safety Report 4355418-2 (Version None)
Quarter: 2004Q2

REPORT INFORMATION
  Report Type: 
  Country: None (occurrence: None)
  Receive Date: 20040504
  Receipt Date: 20040423
  Transmission Date: 20050107
  Serious: Yes (Hospitalization)
  Sender: FDA-Public Use
  Company Number: A0429730A

PATIENT
  Age: 67 Year
  Sex: Female

DRUGS (7)
  1. NICODERM CQ [Suspect]
     Indication: EX-SMOKER
     Dosage: 21 MG/PER DAY/TRANSDERMAL
     Route: 062
     Dates: start: 20031008
  2. SALCATONIN [Concomitant]
  3. TRAMADOL HCL [Concomitant]
  4. DILTIAZEM HYDROCHLORIDE [Concomitant]
  5. CITALOPRAM HYDROBROMIDE [Concomitant]
  6. ROFECOXIB [Concomitant]
  7. RISEDRONIC ACID [Concomitant]

REACTIONS (7)
  - ATHEROSCLEROSIS [None]
  - CARDIOMEGALY [None]
  - CEREBRAL ATROPHY [None]
  - CONFUSIONAL STATE [None]
  - GLOBAL AMNESIA [None]
  - HIATUS HERNIA [None]
  - STRESS SYMPTOMS [None]
